FAERS Safety Report 23691601 (Version 7)
Quarter: 2024Q4

REPORT INFORMATION
  Report Type: Spontaneous
  Country: US (occurrence: US)
  Receive Date: 20240401
  Receipt Date: 20241122
  Transmission Date: 20250115
  Serious: Yes (Other)
  Sender: BRISTOL-MYERS SQUIBB COMPANY
  Company Number: US-BRISTOL-MYERS SQUIBB COMPANY-2024-051107

PATIENT
  Age: 74 Year
  Sex: Female

DRUGS (3)
  1. POMALYST [Suspect]
     Active Substance: POMALIDOMIDE
     Indication: Plasma cell myeloma
     Route: 048
  2. POMALYST [Suspect]
     Active Substance: POMALIDOMIDE
     Indication: Anaemia vitamin B12 deficiency
  3. POMALYST [Suspect]
     Active Substance: POMALIDOMIDE
     Indication: Iron deficiency anaemia

REACTIONS (9)
  - Contusion [Unknown]
  - Dyspnoea exertional [Unknown]
  - Joint swelling [Unknown]
  - Blood iron decreased [Unknown]
  - Fall [Unknown]
  - Skin disorder [Unknown]
  - Blood iron increased [Unknown]
  - Headache [Unknown]
  - Dyspepsia [Unknown]
